FAERS Safety Report 25318088 (Version 1)
Quarter: 2025Q2

REPORT INFORMATION
  Report Type: Other
  Country: TR (occurrence: TR)
  Receive Date: 20250515
  Receipt Date: 20250515
  Transmission Date: 20250717
  Serious: Yes (Other)
  Sender: ESTEVE
  Company Number: TR-Esteve Pharmaceuticals SA-2176726

PATIENT
  Age: 58 Year
  Sex: Female

DRUGS (4)
  1. METOPIRONE [Suspect]
     Active Substance: METYRAPONE
     Indication: Cushing^s syndrome
  2. CABERGOLINE [Concomitant]
     Active Substance: CABERGOLINE
  3. SULFAMETHOXAZOLE\TRIMETHOPRIM [Concomitant]
     Active Substance: SULFAMETHOXAZOLE\TRIMETHOPRIM
  4. INSULIN NOS [Concomitant]
     Active Substance: INSULIN NOS

REACTIONS (2)
  - Hypokalaemia [Unknown]
  - Nausea [Unknown]
